FAERS Safety Report 9709223 (Version 5)
Quarter: 2013Q4

REPORT INFORMATION
  Report Type: Spontaneous
  Country: JP (occurrence: JP)
  Receive Date: 20131125
  Receipt Date: 20131231
  Transmission Date: 20140711
  Serious: Yes (Life-Threatening, Hospitalization, Other)
  Sender: FDA-Public Use
  Company Number: JP-ABBVIE-13P-087-1167561-00

PATIENT
  Age: 65 Year
  Sex: Female
  Weight: 50 kg

DRUGS (12)
  1. KLARICID [Suspect]
     Indication: OSTEOMYELITIS
     Route: 048
  2. SEVOFLURANE [Interacting]
     Indication: GENERAL ANAESTHESIA
     Route: 055
     Dates: start: 20130315, end: 20130315
  3. REMIFENTANIL HYDROCHLORIDE [Interacting]
     Indication: GENERAL ANAESTHESIA
     Route: 042
     Dates: start: 20130315, end: 20130315
  4. REMIFENTANIL HYDROCHLORIDE [Interacting]
     Indication: MAINTENANCE OF ANAESTHESIA
  5. BEPRICOR [Interacting]
     Indication: ARRHYTHMIA
  6. BEPRICOR [Interacting]
     Indication: ATRIAL FIBRILLATION
  7. MAINTATE [Interacting]
     Indication: ARRHYTHMIA
  8. MAINTATE [Interacting]
     Indication: ATRIAL FIBRILLATION
  9. PROPOFOL [Interacting]
     Indication: GENERAL ANAESTHESIA
     Route: 042
     Dates: start: 20130315, end: 20130315
  10. ROCURONIUM BROMIDE [Interacting]
     Indication: GENERAL ANAESTHESIA
     Route: 042
     Dates: start: 20130315, end: 20130315
  11. ANAESTHETICS [Interacting]
     Indication: GENERAL ANAESTHESIA
  12. VERAPAMIL [Concomitant]
     Indication: ARRHYTHMIA PROPHYLAXIS

REACTIONS (7)
  - Ventricular extrasystoles [Recovered/Resolved]
  - Torsade de pointes [Recovered/Resolved]
  - Electrocardiogram QT prolonged [Recovered/Resolved]
  - Drug interaction [Unknown]
  - Ventricular fibrillation [Recovered/Resolved]
  - Cardiac disorder [Recovered/Resolved]
  - Electrolyte imbalance [Recovered/Resolved]
